FAERS Safety Report 9519335 (Version 1)
Quarter: 2013Q1

REPORT INFORMATION
  Report Type: Spontaneous
  Country: US (occurrence: None)
  Receive Date: 20130305
  Receipt Date: 20130305
  Transmission Date: 20140127
  Serious: Yes (Hospitalization)
  Sender: FDA-Public Use
  Company Number: 163-21880-12061189

PATIENT
  Age: 74 Year
  Sex: Female

DRUGS (5)
  1. REVLIMID (LENALIDOMIDE) (CAPSULES) [Suspect]
     Indication: PLASMA CELL MYELOMA
     Dosage: 15 MG, 1 IN 1 D, PO
     Route: 048
     Dates: start: 20110811
  2. FAMCICLOVIR (FAMCICLOVIR) (UNKNOWN) [Concomitant]
  3. FENOFIBRATE (FENOFIBRATE) (UNKNOWN) [Concomitant]
  4. METOPROLOL (METOPROLOL) (UNKNOWN) [Concomitant]
  5. ALLOPURINOL (ALLOPURINOL) (UNKNOWN) [Concomitant]

REACTIONS (6)
  - Anaemia [None]
  - Asthenia [None]
  - Rash [None]
  - Dizziness [None]
  - Alopecia [None]
  - Hyperhidrosis [None]
